FAERS Safety Report 9411060 (Version 1)
Quarter: 2013Q3

REPORT INFORMATION
  Report Type: Spontaneous
  Country: US (occurrence: US)
  Receive Date: 20130720
  Receipt Date: 20130720
  Transmission Date: 20140515
  Serious: Yes (Other)
  Sender: FDA-Public Use
  Company Number: US-ASTRAZENECA-2013SE51802

PATIENT
  Age: 59 Year
  Sex: Male

DRUGS (8)
  1. OMEPRAZOLE [Suspect]
     Indication: GASTROOESOPHAGEAL REFLUX DISEASE
     Route: 048
     Dates: start: 201009
  2. OMEPRAZOLE [Interacting]
     Indication: ACQUIRED OESOPHAGEAL WEB
     Route: 048
     Dates: start: 201009
  3. ATORVASTATIN [Interacting]
     Indication: ACUTE MYOCARDIAL INFARCTION
     Dates: start: 200604
  4. GEMFIBROZIL [Interacting]
     Indication: ACUTE MYOCARDIAL INFARCTION
     Dates: start: 200607
  5. AMLODIPINE [Concomitant]
  6. ASPIRIN [Concomitant]
  7. NITRATE [Concomitant]
  8. METOPROLOL [Concomitant]

REACTIONS (2)
  - Drug interaction [Recovered/Resolved]
  - Polymyositis [Recovered/Resolved]
